FAERS Safety Report 6593764-2 (Version None)
Quarter: 2010Q1

REPORT INFORMATION
  Report Type: 
  Country: None (occurrence: None)
  Receive Date: 20100222
  Receipt Date: 20100211
  Transmission Date: 20100710
  Serious: Yes (Hospitalization)
  Sender: FDA-Public Use
  Company Number: FR-BAYER-201015873GPV

PATIENT
  Age: 61 Year
  Sex: Male

DRUGS (2)
  1. MABCAMPATH [Suspect]
     Indication: ACUTE PROMYELOCYTIC LEUKAEMIA
     Dosage: CYCLE 1 STARTED ONE WEEK PRIOR TO ONSET
     Dates: start: 20100201, end: 20100201
  2. MABCAMPATH [Suspect]
     Dosage: CYCLE 2
     Dates: start: 20100210

REACTIONS (2)
  - ASCITES [None]
  - DISSEMINATED INTRAVASCULAR COAGULATION [None]
